FAERS Safety Report 16397029 (Version 2)
Quarter: 2020Q2

REPORT INFORMATION
  Report Type: Spontaneous
  Country: DE (occurrence: DE)
  Receive Date: 20190606
  Receipt Date: 20200515
  Transmission Date: 20200713
  Serious: Yes (Life-Threatening, Hospitalization, Other)
  Sender: FDA-Public Use
  Company Number: DE-AUROBINDO-AUR-APL-2019-031386

PATIENT
  Sex: Male

DRUGS (3)
  1. CLOPIDOGREL [Suspect]
     Active Substance: CLOPIDOGREL BISULFATE
     Indication: STENT PLACEMENT
     Dosage: 75 MILLIGRAM
     Route: 065
  2. APIXABAN [Suspect]
     Active Substance: APIXABAN
     Indication: PRODUCT USED FOR UNKNOWN INDICATION
     Dosage: 2.5 MILLIGRAM, TWO TIMES A DAY (5 MILLIGRAM,ONCE A DAY)
     Route: 065
     Dates: start: 201810
  3. ASPIRIN. [Concomitant]
     Active Substance: ASPIRIN
     Indication: PRODUCT USED FOR UNKNOWN INDICATION
     Dosage: 100 MILLIGRAM (STOPPED IN JAN)
     Route: 065

REACTIONS (8)
  - Epistaxis [Recovering/Resolving]
  - Urinary bladder haemorrhage [Recovering/Resolving]
  - Fall [Unknown]
  - Off label use [Unknown]
  - Haemorrhage [Unknown]
  - Contraindicated product administered [Unknown]
  - Renal disorder [Unknown]
  - Prostate cancer [Unknown]
